FAERS Safety Report 15354894 (Version 3)
Quarter: 2019Q3

REPORT INFORMATION
  Report Type: Spontaneous
  Country: PL (occurrence: PL)
  Receive Date: 20180906
  Receipt Date: 20190830
  Transmission Date: 20191004
  Serious: Yes (Other)
  Sender: FDA-Public Use
  Company Number: PL-SUN PHARMACEUTICAL INDUSTRIES LTD-2018RR-183647

PATIENT
  Age: 65 Year
  Sex: Female

DRUGS (29)
  1. ATORVASTATIN [Interacting]
     Active Substance: ATORVASTATIN
     Indication: HYPERTENSION
     Dosage: ()
     Route: 065
  2. LANSOPRAZOLE. [Interacting]
     Active Substance: LANSOPRAZOLE
     Indication: HYPERLIPIDAEMIA
     Dosage: ()
     Route: 065
  3. LANSOPRAZOLE. [Interacting]
     Active Substance: LANSOPRAZOLE
     Indication: ARRHYTHMIA SUPRAVENTRICULAR
     Dosage: 15 MG, 1X/DAY
     Route: 065
  4. PROPAFENONE. [Interacting]
     Active Substance: PROPAFENONE
     Indication: HYPERLIPIDAEMIA
     Dosage: 150 MG, QD
     Route: 065
  5. SULPIRIDE ADAMANTANECARBOXYLATE [Interacting]
     Active Substance: SULPIRIDE ADAMANTANECARBOXYLATE
     Indication: DEPRESSION
     Dosage: 150 MG, 1X/DAY
     Route: 065
  6. AMLODIPINE BESILATE [Interacting]
     Active Substance: AMLODIPINE BESYLATE
     Indication: ARRHYTHMIA SUPRAVENTRICULAR
     Dosage: 5 MG, 1X/DAY
     Route: 065
  7. ENALAPRIL + HIDROCLOROTIAZIDA [Interacting]
     Active Substance: ENALAPRIL MALEATE\HYDROCHLOROTHIAZIDE
     Indication: HYPERTENSION
     Dosage: 12.5 MG, 1X/DAY (HYDROCHLOROTHIAZIDE)
     Route: 065
  8. PERAZINE [Interacting]
     Active Substance: PERAZINE
     Indication: DEPRESSION
     Dosage: 75 MG, 1X/DAY
     Route: 065
  9. LEVOMEPROMAZINE [Interacting]
     Active Substance: LEVOMEPROMAZINE
     Indication: DEPRESSION
     Dosage: 50 MG, AT BEDTIME
     Route: 065
  10. VINPOCETINE ACONITUM [Interacting]
     Active Substance: VINPOCETINE
     Indication: DEPRESSION
     Dosage: 15 MG, 1X/DAY
     Route: 065
  11. AMITRIPTYLINE /00002202/ [Interacting]
     Active Substance: AMITRIPTYLINE
     Indication: DEPRESSION
     Dosage: 225 MG, 1X/DAY
     Route: 065
  12. LANSOPRAZOLE. [Interacting]
     Active Substance: LANSOPRAZOLE
     Indication: HYPERTENSION
     Dosage: ()
     Route: 065
  13. SULPIRIDE ADAMANTANECARBOXYLATE [Interacting]
     Active Substance: SULPIRIDE ADAMANTANECARBOXYLATE
     Dosage: 50 MG, QD
     Route: 065
  14. ACETYLSALICYLIC ACID [Interacting]
     Active Substance: ASPIRIN
     Indication: ARRHYTHMIA SUPRAVENTRICULAR
     Dosage: 75 MG, DAILY
     Route: 065
  15. ATORVASTATIN [Interacting]
     Active Substance: ATORVASTATIN
     Indication: ARRHYTHMIA SUPRAVENTRICULAR
     Dosage: 20 MG, 1X/DAY
     Route: 065
  16. AMLODIPINE BESILATE [Interacting]
     Active Substance: AMLODIPINE BESYLATE
     Indication: HYPERTENSION
     Dosage: ()
     Route: 065
  17. ENALAPRIL + HIDROCLOROTIAZIDA [Interacting]
     Active Substance: ENALAPRIL MALEATE\HYDROCHLOROTHIAZIDE
     Indication: ARRHYTHMIA SUPRAVENTRICULAR
     Dosage: 16 MG, 1X/DAY (ENALAPRIL)
     Route: 065
  18. ACETYLSALICYLIC ACID [Interacting]
     Active Substance: ASPIRIN
     Indication: HYPERLIPIDAEMIA
     Dosage: ()
     Route: 065
  19. BUSPIRONE [Interacting]
     Active Substance: BUSPIRONE HYDROCHLORIDE
     Indication: DEPRESSION
     Dosage: 10 MG, 1X/DAY
     Route: 065
  20. CANDESARTAN, HYDROCHLOROTHIAZIDE [Suspect]
     Active Substance: CANDESARTAN CILEXETIL\HYDROCHLOROTHIAZIDE
     Indication: HYPERTENSION
     Dosage: 16 MG OF CANDESARTAN + 12,5 MG OF HYDROCHLOROTHIAZIDE/DAY
     Route: 065
  21. PROPAFENONE. [Interacting]
     Active Substance: PROPAFENONE
     Indication: HYPERTENSION
     Dosage: ()
     Route: 065
  22. LAMOTRIGINE A [Interacting]
     Active Substance: LAMOTRIGINE
     Indication: DEPRESSION
     Dosage: 150 MG, 1X/DAY
     Route: 065
  23. PROPAFENONE. [Interacting]
     Active Substance: PROPAFENONE
     Indication: ARRHYTHMIA SUPRAVENTRICULAR
     Dosage: 450 MG, 1X/DAY
     Route: 065
  24. AMLODIPINE BESILATE [Interacting]
     Active Substance: AMLODIPINE BESYLATE
     Indication: HYPERLIPIDAEMIA
     Dosage: ()
     Route: 065
  25. ATORVASTATIN [Suspect]
     Active Substance: ATORVASTATIN
     Indication: HYPERLIPIDAEMIA
     Dosage: ()
     Route: 065
  26. SULPIRIDE ADAMANTANECARBOXYLATE [Interacting]
     Active Substance: SULPIRIDE ADAMANTANECARBOXYLATE
     Dosage: 10 MG, QD
     Route: 065
  27. ENALAPRIL + HIDROCLOROTIAZIDA [Interacting]
     Active Substance: ENALAPRIL MALEATE\HYDROCHLOROTHIAZIDE
     Indication: HYPERLIPIDAEMIA
     Dosage: 16 MG, QD
     Route: 065
  28. ACETYLSALICYLIC ACID [Interacting]
     Active Substance: ASPIRIN
     Indication: HYPERTENSION
     Dosage: ()
     Route: 065
  29. SERTRALINE HCL [Interacting]
     Active Substance: SERTRALINE HYDROCHLORIDE
     Indication: DEPRESSION
     Dosage: 100 MG, 1X/DAY; 100 MG IN THE MORNING
     Route: 065

REACTIONS (28)
  - Fall [Recovering/Resolving]
  - Fall [Recovered/Resolved]
  - Nervous system disorder [Unknown]
  - Somnolence [Recovering/Resolving]
  - Dizziness [Recovered/Resolved]
  - Extrapyramidal disorder [Recovered/Resolved]
  - Bradykinesia [Recovered/Resolved]
  - Tension [Recovering/Resolving]
  - Depression [Recovering/Resolving]
  - Tension [Unknown]
  - Sleep disorder [Recovering/Resolving]
  - Fatigue [Recovering/Resolving]
  - Balance disorder [Recovered/Resolved]
  - Flat affect [Recovering/Resolving]
  - Amnesia [Recovering/Resolving]
  - Psychomotor retardation [Recovering/Resolving]
  - Anxiety [Recovered/Resolved]
  - Somnolence [Recovered/Resolved]
  - Mental disorder [Recovering/Resolving]
  - Emotional disorder [Recovering/Resolving]
  - Cognitive disorder [Recovered/Resolved]
  - Disturbance in attention [Recovering/Resolving]
  - Overweight [Unknown]
  - Drug ineffective [Recovering/Resolving]
  - Depressed mood [Recovering/Resolving]
  - Anxiety [Unknown]
  - Drug interaction [Recovering/Resolving]
  - Anhedonia [Recovering/Resolving]
